FAERS Safety Report 8154612-2 (Version None)
Quarter: 2012Q1

REPORT INFORMATION
  Report Type: 
  Country: None (occurrence: None)
  Receive Date: 20120221
  Receipt Date: 20120209
  Transmission Date: 20120608
  Serious: Yes (Hospitalization, Other)
  Sender: FDA-Public Use
  Company Number: ES-COVIDIEN/TYCO HEALTHCARE/MALLINCKRODT-T201200632

PATIENT
  Age: 40 Year
  Sex: Female

DRUGS (1)
  1. ACETAMINOPHEN AND CODEINE PHOSPHATE [Suspect]
     Indication: HEADACHE
     Dosage: 500/300 MG, 16 SUPPOSITORIES DAILY FOR ONE YEAR

REACTIONS (3)
  - DRUG ABUSE [None]
  - RECTAL ULCER [None]
  - DRUG DEPENDENCE [None]
